FAERS Safety Report 17663949 (Version 1)
Quarter: 2020Q2

REPORT INFORMATION
  Report Type: Spontaneous
  Country: US (occurrence: US)
  Receive Date: 20200414
  Receipt Date: 20200414
  Transmission Date: 20200713
  Serious: Yes (Other)
  Sender: FDA-Public Use
  Company Number: US-MICRO LABS LIMITED-ML2020-01148

PATIENT
  Age: 12 Year
  Sex: Female

DRUGS (2)
  1. DEPO-PROVERA [Suspect]
     Active Substance: MEDROXYPROGESTERONE ACETATE
     Indication: MENORRHAGIA
     Route: 065
  2. TRANEXAMIC ACID. [Suspect]
     Active Substance: TRANEXAMIC ACID
     Indication: MENORRHAGIA
     Route: 065

REACTIONS (1)
  - Drug ineffective [Unknown]
